FAERS Safety Report 6423575-X (Version None)
Quarter: 2009Q4

REPORT INFORMATION
  Report Type: 
  Country: None (occurrence: None)
  Receive Date: 20091030
  Receipt Date: 20091030
  Transmission Date: 20100525
  Serious: No
  Sender: FDA-Public Use
  Company Number: None

PATIENT
  Age: 54 Year
  Sex: Female
  Weight: 76.6579 kg

DRUGS (4)
  1. SALBUTAMOL INHALER 200METERED DOSE GLAXOSMITHKLINE [Suspect]
     Indication: ASTHMA
  2. SALBUTAMOL INHALER 200METERED DOSE GLAXOSMITHKLINE [Suspect]
     Indication: CHRONIC OBSTRUCTIVE PULMONARY DISEASE
  3. SALBUTAMOL INHALER 200METERED DOSE GLAXOSMITHKLINE [Suspect]
     Indication: EMPHYSEMA
  4. ADVAIR DISKUS 100/50 [Suspect]

REACTIONS (3)
  - DEVICE OCCLUSION [None]
  - DRUG INEFFECTIVE [None]
  - DYSPNOEA [None]
